FAERS Safety Report 6115992-2 (Version None)
Quarter: 2009Q1

REPORT INFORMATION
  Report Type: 
  Country: None (occurrence: None)
  Receive Date: 20090314
  Receipt Date: 20090130
  Transmission Date: 20090719
  Serious: No
  Sender: FDA-Public Use
  Company Number: US-ABBOTT-08P-163-0479157-00

PATIENT
  Sex: Female
  Weight: 69.916 kg

DRUGS (16)
  1. HUMIRA [Suspect]
     Indication: RHEUMATOID ARTHRITIS
     Route: 058
     Dates: start: 20081030
  2. HUMIRA [Suspect]
     Indication: PSORIASIS
  3. METHOTREXATE [Concomitant]
     Indication: RHEUMATOID ARTHRITIS
     Route: 048
  4. OMEPRAZOLE [Concomitant]
     Indication: GASTROOESOPHAGEAL REFLUX DISEASE
     Route: 048
  5. METOPROLOL TARTRATE [Concomitant]
     Indication: HYPERTENSION
     Route: 048
  6. METOPROLOL TARTRATE [Concomitant]
     Indication: CARDIAC DISORDER
  7. AVALIDE [Concomitant]
     Indication: CARDIAC DISORDER
     Route: 048
  8. AVALIDE [Concomitant]
     Indication: BLOOD PRESSURE
  9. EDECRIN [Concomitant]
     Indication: DIURETIC THERAPY
     Route: 048
  10. PREDNISONE [Concomitant]
     Indication: RHEUMATOID ARTHRITIS
     Route: 048
  11. FOLIC ACID [Concomitant]
     Indication: RHEUMATOID ARTHRITIS
     Route: 048
  12. GUANFACINE HYDROCHLORIDE [Concomitant]
     Indication: INSOMNIA
     Route: 048
  13. GUANFACINE HYDROCHLORIDE [Concomitant]
     Indication: HYPERTENSION
  14. AMITRIPTYLINE [Concomitant]
     Indication: INSOMNIA
     Route: 048
  15. SIMVASTATIN [Concomitant]
     Indication: BLOOD CHOLESTEROL
     Route: 048
  16. LANTUS [Concomitant]
     Indication: DIABETES MELLITUS
     Route: 058

REACTIONS (3)
  - PSORIASIS [None]
  - RASH [None]
  - URINARY TRACT INFECTION [None]
